FAERS Safety Report 19682245 (Version 1)
Quarter: 2021Q3

REPORT INFORMATION
  Report Type: Report from Study
  Country: US (occurrence: US)
  Receive Date: 20210810
  Receipt Date: 20210810
  Transmission Date: 20211014
  Serious: Yes (Hospitalization, Other)
  Sender: FDA-Public Use
  Company Number: US-ASTRAZENECA-2021A516239

PATIENT
  Age: 29522 Day
  Sex: Female
  Weight: 51.3 kg

DRUGS (23)
  1. AMLODIPINE [Concomitant]
     Active Substance: AMLODIPINE BESYLATE
     Route: 048
  2. MODAFINIL. [Concomitant]
     Active Substance: MODAFINIL
     Dosage: 100.0MG UNKNOWN
     Route: 048
  3. METOPROLOL TARTRATE. [Suspect]
     Active Substance: METOPROLOL TARTRATE
     Route: 048
  4. ASPIRIN. [Concomitant]
     Active Substance: ASPIRIN
     Dosage: DELAYED RELEASE
     Route: 048
  5. MOMETASONE?DORMOTEROL HFA [Concomitant]
     Dosage: 100?5 MCG/ACTUATION, 2 PUFFS INHALED TWO TIMES PER DAY
  6. RANITIDINE. [Concomitant]
     Active Substance: RANITIDINE
     Dosage: 150.0MG UNKNOWN
     Route: 048
  7. GABAPENTIN. [Concomitant]
     Active Substance: GABAPENTIN
     Dosage: AT BEDTIME
     Route: 048
  8. TOSITUMOMAB [Concomitant]
     Active Substance: TOSITUMOMAB
  9. DONEPEZIL. [Concomitant]
     Active Substance: DONEPEZIL
     Dosage: 10.0MG UNKNOWN
     Route: 048
  10. ATROPINE/DIPHENOXYLATE [Concomitant]
     Active Substance: ATROPINE\DIPHENOXYLATE
     Indication: DIARRHOEA
     Dosage: 25 MG? 0.025 MG
     Route: 048
  11. PLYETHYLENE GLYCOL [Concomitant]
     Indication: CONSTIPATION
     Dosage: 17 GRAM POWDER IN PACKET TAKE 1 PACKET MIXED WITH 8 OZ. WATER, JUICE OR TEA ORALLY 2 TIMES PER DA...
     Route: 048
  12. ATORVASTATIN [Concomitant]
     Active Substance: ATORVASTATIN
     Dosage: AT BEDTIME
     Route: 048
  13. PROMITHAZINE [Concomitant]
     Indication: NAUSEA
     Dosage: 1 TABLET, FOUR TO SIX HOURS AS NEEDED12.5MG UNKNOWN
     Route: 048
  14. METOCLOPRAMIDE. [Concomitant]
     Active Substance: METOCLOPRAMIDE
     Dosage: BEFORE MEALS AND AT BEDTIME
     Route: 048
  15. PROMITHAZINE [Concomitant]
     Indication: VOMITING
     Dosage: 1 TABLET, FOUR TO SIX HOURS AS NEEDED12.5MG UNKNOWN
     Route: 048
  16. TAGRISSO [Suspect]
     Active Substance: OSIMERTINIB
     Indication: LUNG NEOPLASM MALIGNANT
     Route: 048
     Dates: start: 202006
  17. ACETAMINOPHEN?CAFF?VUTALBITAL [Concomitant]
     Indication: HEADACHE
     Dosage: 50?325?40 MG
     Route: 048
  18. SERTRALINE [Concomitant]
     Active Substance: SERTRALINE HYDROCHLORIDE
     Route: 048
  19. AMITRYPTYLINE [Concomitant]
     Active Substance: AMITRIPTYLINE
     Dosage: AT BEDTIME
     Route: 048
  20. CLOPIDOGREL [Concomitant]
     Active Substance: CLOPIDOGREL BISULFATE
     Route: 048
  21. CLONAZEPAM. [Concomitant]
     Active Substance: CLONAZEPAM
     Dosage: 0.5MG UNKNOWN
     Route: 048
  22. CLONIDINE. [Concomitant]
     Active Substance: CLONIDINE
     Indication: BLOOD PRESSURE SYSTOLIC INCREASED
     Route: 048
  23. LISINOPRIL. [Concomitant]
     Active Substance: LISINOPRIL
     Route: 048

REACTIONS (3)
  - Hip fracture [Recovering/Resolving]
  - Fall [Unknown]
  - Limb injury [Unknown]

NARRATIVE: CASE EVENT DATE: 20210604
